FAERS Safety Report 16494702 (Version 9)
Quarter: 2022Q4

REPORT INFORMATION
  Report Type: Report from Study
  Country: DE (occurrence: None)
  Receive Date: 20190628
  Receipt Date: 20221019
  Transmission Date: 20230112
  Serious: Yes (Death, Hospitalization)
  Sender: FDA-Public Use
  Company Number: DE-EISAI MEDICAL RESEARCH-EC-2019-055892

PATIENT
  Age: 64 Year
  Sex: Male
  Weight: 60 kg

DRUGS (26)
  1. LENVATINIB [Suspect]
     Active Substance: LENVATINIB
     Indication: Thyroid cancer
     Route: 048
     Dates: start: 20181018, end: 20190429
  2. LENVATINIB [Suspect]
     Active Substance: LENVATINIB
     Route: 048
     Dates: start: 20190526, end: 20190619
  3. LENVATINIB [Suspect]
     Active Substance: LENVATINIB
     Route: 048
     Dates: start: 20190722, end: 20190722
  4. LENVATINIB [Suspect]
     Active Substance: LENVATINIB
     Route: 048
     Dates: start: 20190723, end: 20191003
  5. CALCIUM [Concomitant]
     Active Substance: CALCIUM
  6. LEVOTHYROXINE SODIUM [Concomitant]
     Active Substance: LEVOTHYROXINE SODIUM
  7. CHOLECALCIFEROL [Concomitant]
     Active Substance: CHOLECALCIFEROL
  8. CALCITRIOL [Concomitant]
     Active Substance: CALCITRIOL
  9. AMITRIPTYLINE [Concomitant]
     Active Substance: AMITRIPTYLINE
  10. OXYCODONE [Concomitant]
     Active Substance: OXYCODONE
  11. PREGABALIN [Concomitant]
     Active Substance: PREGABALIN
  12. PANTOPRAZOLE SODIUM [Concomitant]
     Active Substance: PANTOPRAZOLE SODIUM
  13. BISOPROLOL [Concomitant]
     Active Substance: BISOPROLOL
  14. ALLOPURINOL [Concomitant]
     Active Substance: ALLOPURINOL
  15. LOPERAMIDE [Concomitant]
     Active Substance: LOPERAMIDE
  16. MAGNESIUM [Concomitant]
     Active Substance: MAGNESIUM
  17. FRESUBIN [Concomitant]
     Active Substance: AMINO ACIDS\DEXTROSE\ELECTROLYTES NOS\SOYBEAN OIL\VITAMINS
  18. ZOMETA [Concomitant]
     Active Substance: ZOLEDRONIC ACID
  19. SULTAMICILLIN [Concomitant]
     Active Substance: SULTAMICILLIN
  20. SALBUBRONCH ELEXIER [Concomitant]
  21. ACETAMINOPHEN [Concomitant]
     Active Substance: ACETAMINOPHEN
  22. ACETYLCYSTEINE [Concomitant]
     Active Substance: ACETYLCYSTEINE
  23. AZITHROMYCIN [Concomitant]
     Active Substance: AZITHROMYCIN
  24. FUROSEMIDE [Concomitant]
     Active Substance: FUROSEMIDE
  25. SPIRONOLACTONE [Concomitant]
     Active Substance: SPIRONOLACTONE
  26. ROXI ARISTO [Concomitant]

REACTIONS (3)
  - Pneumonia [Fatal]
  - Pleural effusion [Recovered/Resolved]
  - Haematuria [Recovered/Resolved]

NARRATIVE: CASE EVENT DATE: 20190430
